FAERS Safety Report 6361016-1 (Version None)
Quarter: 2009Q3

REPORT INFORMATION
  Report Type: 
  Country: None (occurrence: None)
  Receive Date: 20090915
  Receipt Date: 20090915
  Transmission Date: 20100115
  Serious: No
  Sender: FDA-Public Use
  Company Number: None

PATIENT
  Sex: Male
  Weight: 95.2554 kg

DRUGS (2)
  1. RIBAVARIN [Suspect]
     Indication: HEPATITIS C
     Dosage: 600 MG- ONE TABLET 2 TIMES/DAY + 1/PM PO
     Route: 048
     Dates: start: 20090826, end: 20090906
  2. PEG-INTRON [Suspect]
     Indication: HEPATITIS C
     Dosage: 150 MCG ONCE PER WEEK SQ
     Route: 058
     Dates: start: 20090826, end: 20090906

REACTIONS (5)
  - MUSCULOSKELETAL PAIN [None]
  - PAIN IN EXTREMITY [None]
  - PLATELET COUNT DECREASED [None]
  - RED BLOOD CELL COUNT DECREASED [None]
  - WHITE BLOOD CELL COUNT DECREASED [None]
